FAERS Safety Report 22118088 (Version 3)
Quarter: 2023Q2

REPORT INFORMATION
  Report Type: Spontaneous
  Country: US (occurrence: None)
  Receive Date: 20230321
  Receipt Date: 20230410
  Transmission Date: 20230721
  Serious: Yes (Other)
  Sender: FDA-Public Use
  Company Number: US-ROCHE-3306146

PATIENT
  Age: 47 Year
  Sex: Female
  Weight: 150.27 kg

DRUGS (6)
  1. XOLAIR [Suspect]
     Active Substance: OMALIZUMAB
     Indication: Urticaria
     Route: 058
  2. XOLAIR [Suspect]
     Active Substance: OMALIZUMAB
  3. XOLAIR [Suspect]
     Active Substance: OMALIZUMAB
     Route: 058
     Dates: start: 202007
  4. XOLAIR [Suspect]
     Active Substance: OMALIZUMAB
  5. ZOMETA [Concomitant]
     Active Substance: ZOLEDRONIC ACID
  6. OXYGEN [Concomitant]
     Active Substance: OXYGEN

REACTIONS (8)
  - Systemic lupus erythematosus [Not Recovered/Not Resolved]
  - Influenza like illness [Recovered/Resolved]
  - Pain [Not Recovered/Not Resolved]
  - Device dislocation [Unknown]
  - Underdose [Unknown]
  - Syringe issue [Unknown]
  - Accidental exposure to product [Unknown]
  - Off label use [Unknown]

NARRATIVE: CASE EVENT DATE: 20201101
